FAERS Safety Report 10215121 (Version 1)
Quarter: 2014Q2

REPORT INFORMATION
  Report Type: Spontaneous
  Country: US (occurrence: US)
  Receive Date: 20140603
  Receipt Date: 20140603
  Transmission Date: 20141212
  Serious: No
  Sender: FDA-Public Use
  Company Number: US-B.I. PHARMACEUTICALS,INC./RIDGEFIELD-2014-BI-22877BP

PATIENT
  Sex: Female

DRUGS (8)
  1. SPIRIVA [Suspect]
     Indication: PRODUCT USED FOR UNKNOWN INDICATION
     Dosage: 18 MCG
     Route: 055
     Dates: start: 2006
  2. VENTOLIN [Concomitant]
     Route: 065
  3. FLONASE [Concomitant]
     Route: 065
  4. BENICAR [Concomitant]
     Route: 065
  5. ZOLOFT [Concomitant]
     Route: 065
  6. PRILOSEC [Concomitant]
     Route: 065
  7. ZYRTEC [Concomitant]
     Route: 065
  8. LEVOTHYROXINE [Concomitant]
     Route: 065

REACTIONS (1)
  - Visual acuity reduced [Not Recovered/Not Resolved]
